FAERS Safety Report 4388267-X (Version None)
Quarter: 2004Q2

REPORT INFORMATION
  Report Type: 
  Country: None (occurrence: None)
  Receive Date: 20040630
  Receipt Date: 20040630
  Transmission Date: 20050107
  Serious: Yes (Life-Threatening, Hospitalization)
  Sender: FDA-Public Use
  Company Number: None

PATIENT
  Age: 17 Year
  Sex: Male
  Weight: 127.3 kg

DRUGS (4)
  1. ZOSYN [Suspect]
     Indication: PROPHYLAXIS
     Dosage: IV Q 8 H
     Route: 042
     Dates: start: 20040501, end: 20040617
  2. GLUCOPHAGE [Concomitant]
  3. HUMULIN 70/30 [Concomitant]
  4. TYLENOL W/ CODEINE NO. 2 [Concomitant]

REACTIONS (1)
  - PANCYTOPENIA [None]
